FAERS Safety Report 6020439-0 (Version None)
Quarter: 2008Q4

REPORT INFORMATION
  Report Type: 
  Country: None (occurrence: None)
  Receive Date: 20081226
  Receipt Date: 20081215
  Transmission Date: 20090506
  Serious: Yes (Hospitalization)
  Sender: FDA-Public Use
  Company Number: SE-ROCHE-596540

PATIENT

DRUGS (3)
  1. CAPECITABINE [Suspect]
     Dosage: ROUTE AND THERAPY DETAILS CAPTURED AS PER PROTOCOL. LAST DOSE REPORTED AS:20 NOVEMBER 2008
     Route: 048
     Dates: start: 20081016, end: 20081120
  2. BEVACIZUMAB [Suspect]
     Dosage: FORM: INFUSION. ROUTE, FREQ. AND FORM CODED AS PER PROTOCOL, LAST DOSE REPORTED AS : 6 NOVEMBER 2008
     Route: 042
     Dates: start: 20081106, end: 20081106
  3. OXALIPLATIN [Suspect]
     Dosage: DOSE AND FREQUENCY AS PER PROTOCOL. LAST DOSE REPORTED AS:6 NOVEMBER 2008
     Route: 042
     Dates: start: 20081016, end: 20081106

REACTIONS (3)
  - ABDOMINAL PAIN [None]
  - INFECTION [None]
  - PYREXIA [None]
